FAERS Safety Report 24797069 (Version 1)
Quarter: 2025Q1

REPORT INFORMATION
  Report Type: Spontaneous
  Country: US (occurrence: US)
  Receive Date: 20250101
  Receipt Date: 20250101
  Transmission Date: 20250408
  Serious: Yes (Disabling)
  Sender: JOHNSON AND JOHNSON
  Company Number: US-MLMSERVICE-20241216-PI303094-00174-2

PATIENT
  Age: 84 Year
  Sex: Female

DRUGS (6)
  1. HALDOL [Suspect]
     Active Substance: HALOPERIDOL
     Indication: Antipsychotic therapy
     Route: 065
     Dates: start: 201302
  2. NORVASC [Concomitant]
     Active Substance: AMLODIPINE BESYLATE
  3. ATIVAN [Concomitant]
     Active Substance: LORAZEPAM
  4. REMERON [Concomitant]
     Active Substance: MIRTAZAPINE
  5. ULTRAM [Concomitant]
     Active Substance: TRAMADOL HYDROCHLORIDE
     Indication: Back pain
  6. TYLENOL [Concomitant]
     Active Substance: ACETAMINOPHEN
     Indication: Back pain

REACTIONS (3)
  - Bedridden [Unknown]
  - Vomiting [Unknown]
  - Lethargy [Unknown]

NARRATIVE: CASE EVENT DATE: 20130101
